FAERS Safety Report 4944378-9 (Version None)
Quarter: 2006Q1

REPORT INFORMATION
  Report Type: 
  Country: None (occurrence: None)
  Receive Date: 20060315
  Receipt Date: 20051010
  Transmission Date: 20060701
  Serious: Yes (Death, Hospitalization)
  Sender: FDA-Public Use
  Company Number: US-MERCK-0510USA06256

PATIENT
  Age: 71 Year
  Sex: Female
  Weight: 59 kg

DRUGS (12)
  1. VIOXX [Suspect]
     Indication: OSTEOARTHRITIS
     Route: 048
     Dates: start: 20030930, end: 20031101
  2. VIOXX [Suspect]
     Route: 048
     Dates: start: 20020402, end: 20020401
  3. VIOXX [Suspect]
     Route: 048
     Dates: start: 20040101, end: 20040901
  4. IBUPROFEN [Concomitant]
     Indication: BACK PAIN
     Route: 048
  5. PREMARIN [Concomitant]
     Indication: POSTMENOPAUSE
     Route: 048
  6. VANCENASE [Concomitant]
     Indication: RHINITIS ALLERGIC
     Route: 055
  7. PLENDIL [Concomitant]
     Indication: HYPERTENSION
     Route: 048
  8. TENORMIN [Concomitant]
     Indication: PALPITATIONS
     Route: 048
  9. TENORMIN [Concomitant]
     Indication: TACHYCARDIA
     Route: 048
  10. ZYRTEC [Concomitant]
     Indication: RHINITIS ALLERGIC
     Route: 048
  11. ATIVAN [Concomitant]
     Indication: ANXIETY
     Route: 048
  12. SOMA [Concomitant]
     Indication: BACK PAIN
     Route: 048

REACTIONS (11)
  - ACUTE MYOCARDIAL INFARCTION [None]
  - ATRIAL FIBRILLATION [None]
  - BLOOD PRESSURE ABNORMAL [None]
  - CEREBRAL ARTERY OCCLUSION [None]
  - FEELING ABNORMAL [None]
  - GASTROINTESTINAL DISORDER [None]
  - HYPERLIPIDAEMIA [None]
  - INTERVERTEBRAL DISC DEGENERATION [None]
  - OSTEOPOROSIS [None]
  - SUPRAVENTRICULAR EXTRASYSTOLES [None]
  - URINARY TRACT INFECTION [None]
